FAERS Safety Report 9424688 (Version 4)
Quarter: 2013Q4

REPORT INFORMATION
  Report Type: Spontaneous
  Country: US (occurrence: US)
  Receive Date: 20130729
  Receipt Date: 20131107
  Transmission Date: 20140711
  Serious: Yes (Death, Hospitalization)
  Sender: FDA-Public Use
  Company Number: US-B.I. PHARMACEUTICALS,INC./RIDGEFIELD-2013-BI-21918BP

PATIENT
  Age: 58 Year
  Sex: Female

DRUGS (15)
  1. DULCOLAX TABLETS [Suspect]
     Indication: CONSTIPATION
     Route: 048
     Dates: start: 2011
  2. SENNA [Concomitant]
     Indication: CONSTIPATION
     Route: 048
  3. AMIODARONE HCL [Concomitant]
     Dosage: TABS ? TABLET DAILY
  4. ATORVASTATIN CALCIUM (LIPITOR) [Concomitant]
     Dosage: 80 MG
  5. CARVEDILOL [Concomitant]
     Dosage: 12.5 MG
  6. CETIRIZINE HCL [Concomitant]
     Dosage: 10 MG
  7. CITRACAL + D [Concomitant]
     Dosage: 2 TABLET DAILY
  8. ECOTRIN [Concomitant]
     Dosage: 325 MG
  9. FUROSEMIDE [Concomitant]
     Dosage: ? TABLET DAILY
  10. LEVOTHYROXINE SODIUM [Concomitant]
     Dosage: ? TABLET DAILY
  11. MECLIZINE HCL [Concomitant]
     Dosage: 37.5 MG
  12. NIFEDIPINE [Concomitant]
     Dosage: 120 MG
  13. OLMESARTAN MEDOXOMIL [Concomitant]
     Dosage: 40 MG
  14. PANTOPRAZOLE SODIUM [Concomitant]
     Dosage: 40 MG
  15. ZOLPIDEM TARTRATE [Concomitant]
     Dosage: 10 MG

REACTIONS (1)
  - Pancreatic carcinoma [Fatal]
